APPROVED DRUG PRODUCT: HYDROCODONE BITARTRATE AND ACETAMINOPHEN
Active Ingredient: ACETAMINOPHEN; HYDROCODONE BITARTRATE
Strength: 300MG;10MG
Dosage Form/Route: TABLET;ORAL
Application: A207137 | Product #001
Applicant: AMNEAL PHARMACEUTICALS
Approved: Nov 29, 2016 | RLD: No | RS: No | Type: DISCN